FAERS Safety Report 14656257 (Version 1)
Quarter: 2018Q1

REPORT INFORMATION
  Report Type: Spontaneous
  Country: US (occurrence: US)
  Receive Date: 20180319
  Receipt Date: 20180319
  Transmission Date: 20180509
  Serious: Yes (Hospitalization)
  Sender: FDA-Public Use
  Company Number: US-PFIZER INC-2018105475

PATIENT
  Sex: Female

DRUGS (1)
  1. REVATIO [Suspect]
     Active Substance: SILDENAFIL CITRATE
     Indication: PULMONARY HYPERTENSION
     Dosage: 120 MG, DAILY

REACTIONS (18)
  - Asthenia [Unknown]
  - Blood potassium decreased [Unknown]
  - Dyspnoea [Unknown]
  - Nasopharyngitis [Unknown]
  - Gait inability [Unknown]
  - Palpitations [Unknown]
  - Peripheral swelling [Unknown]
  - Viral infection [Unknown]
  - Chest pain [Unknown]
  - Productive cough [Unknown]
  - Raynaud^s phenomenon [Unknown]
  - Respiratory tract congestion [Unknown]
  - Cough [Unknown]
  - Skin disorder [Unknown]
  - Prescribed overdose [Unknown]
  - Chills [Unknown]
  - Oxygen saturation abnormal [Unknown]
  - Presyncope [Unknown]
